FAERS Safety Report 14518990 (Version 1)
Quarter: 2018Q1

REPORT INFORMATION
  Report Type: Spontaneous
  Country: US (occurrence: US)
  Receive Date: 20180209
  Receipt Date: 20180209
  Transmission Date: 20180509
  Serious: Yes (Other)
  Sender: FDA-Public Use
  Company Number: None

PATIENT
  Age: 34 Year
  Sex: Female
  Weight: 99 kg

DRUGS (9)
  1. HYDROCODONE/ACETAMINOPHEN 5-325 TB [Suspect]
     Active Substance: ACETAMINOPHEN\HYDROCODONE BITARTRATE
     Indication: FIBROMYALGIA
     Dates: start: 20160201, end: 20180208
  2. TIZANIDINE. [Concomitant]
     Active Substance: TIZANIDINE
  3. GABAPENTIN. [Concomitant]
     Active Substance: GABAPENTIN
  4. VENLAFAXINE [Concomitant]
     Active Substance: VENLAFAXINE HYDROCHLORIDE
  5. HYDROCHLOROTHIAZIDE. [Concomitant]
     Active Substance: HYDROCHLOROTHIAZIDE
  6. AMITRYPTALINE [Concomitant]
     Active Substance: AMITRIPTYLINE
  7. HYDROCODONE [Concomitant]
     Active Substance: HYDROCODONE
  8. CORTIGON [Concomitant]
  9. METOPROLOL. [Concomitant]
     Active Substance: METOPROLOL

REACTIONS (4)
  - Loss of personal independence in daily activities [None]
  - Product substitution issue [None]
  - Pain [None]
  - Drug effect decreased [None]

NARRATIVE: CASE EVENT DATE: 20160707
